FAERS Safety Report 10129361 (Version 2)
Quarter: 2014Q2

REPORT INFORMATION
  Report Type: Spontaneous
  Country: US (occurrence: None)
  Receive Date: 20140421
  Receipt Date: 20140630
  Transmission Date: 20141212
  Serious: Yes (Other)
  Sender: FDA-Public Use
  Company Number: AEGR000316

PATIENT
  Age: 69 Year
  Sex: Female
  Weight: 56.7 kg

DRUGS (14)
  1. JUXTAPID (LOMITAPIDE) CAPSULE, 5MG [Suspect]
     Indication: TYPE IIA HYPERLIPIDAEMIA
     Route: 048
     Dates: start: 201401, end: 201404
  2. NIACIN (NIACIN) [Concomitant]
  3. OTHER THERAPEUTIC PRODUCTS [Concomitant]
  4. CALCIUM (CALCIUM) [Concomitant]
  5. CLARITIN (LORATADINE) [Concomitant]
  6. GABAPENTIN (GABAPENTIN) [Concomitant]
  7. MAGNESIUM (MAGNESIUM) [Concomitant]
  8. MULTIVITAMIN (VITAMINS NOS) [Concomitant]
  9. OMEGA 3 (FISH OIL) [Concomitant]
  10. VITAMIN E (TOCOPHERYL ACID SUCCINATE) [Concomitant]
  11. OMEPRAZOLE (OMEPRAZOLE) [Concomitant]
  12. POTASSIUM (POTASSIUM BICARBONATE, POTASSIUM CHLORIDE) [Concomitant]
  13. VITAMIN D3 (COLECALCIFEROL) [Concomitant]
  14. WARFARIN SODIUM (WARFARIN SODIUM) [Concomitant]

REACTIONS (9)
  - Proctalgia [None]
  - Anorectal discomfort [None]
  - Product used for unknown indication [None]
  - Diarrhoea [None]
  - Dementia [None]
  - Quality of life decreased [None]
  - Cough [None]
  - Rhinorrhoea [None]
  - Weight decreased [None]
